FAERS Safety Report 6134647-1 (Version None)
Quarter: 2009Q1

REPORT INFORMATION
  Report Type: 
  Country: None (occurrence: None)
  Receive Date: 20090327
  Receipt Date: 20080912
  Transmission Date: 20090719
  Serious: Yes (Life-Threatening, Hospitalization)
  Sender: FDA-Public Use
  Company Number: PHHO2008IN08209

PATIENT
  Sex: Male
  Weight: 87.2 kg

DRUGS (19)
  1. ALISKIREN ALI+TAB+CVR [Suspect]
     Indication: CARDIOVASCULAR DISORDER
     Dosage: CODE NOT BROKEN
     Route: 048
     Dates: start: 20080214, end: 20080702
  2. METOPROLOL [Suspect]
  3. LOSACOR [Concomitant]
     Indication: HYPERTENSION
     Dosage: UNK
  4. LOSACOR [Concomitant]
     Indication: NEPHROPATHY
  5. ECOSPRIN [Concomitant]
     Indication: MYOCARDIAL ISCHAEMIA
     Dosage: UNK
  6. ECOSPRIN [Concomitant]
     Indication: HYPERTENSION
  7. ATORVASTATIN [Concomitant]
     Indication: DYSLIPIDAEMIA
     Dosage: UNK
  8. ASOMEX [Concomitant]
  9. TRYPTOMER [Concomitant]
  10. ATIVAN [Concomitant]
  11. HUMAN ACTRAPID [Concomitant]
  12. PANTOPRAZOLE SODIUM [Concomitant]
  13. HERBAL LAXATIVE [Concomitant]
  14. DUPHALAC [Concomitant]
  15. IMDUR [Concomitant]
  16. MIXTARD HUMAN 70/30 [Concomitant]
  17. CLINDAMYCIN HCL [Concomitant]
  18. RESULIN [Concomitant]
  19. LASILACTONE [Concomitant]

REACTIONS (33)
  - ACUTE CORONARY SYNDROME [None]
  - ACUTE LEFT VENTRICULAR FAILURE [None]
  - ACUTE MYOCARDIAL INFARCTION [None]
  - ANGINA UNSTABLE [None]
  - BONE EROSION [None]
  - BRONCHITIS [None]
  - CELLULITIS [None]
  - CHEST PAIN [None]
  - DISEASE PROGRESSION [None]
  - DIZZINESS [None]
  - DRUG INEFFECTIVE [None]
  - DYSPNOEA [None]
  - GAIT DISTURBANCE [None]
  - HYPERHIDROSIS [None]
  - HYPERTENSION [None]
  - LIMB INJURY [None]
  - MUSCLE SPASMS [None]
  - MYALGIA [None]
  - OEDEMA PERIPHERAL [None]
  - ORTHOSTATIC HYPOTENSION [None]
  - OSTEOMYELITIS [None]
  - PAIN [None]
  - PAIN IN EXTREMITY [None]
  - PERIPHERAL VASCULAR DISORDER [None]
  - PULMONARY OEDEMA [None]
  - RALES [None]
  - SKIN DISCOLOURATION [None]
  - SKIN ULCER [None]
  - SKIN WARM [None]
  - SOFT TISSUE DISORDER [None]
  - STAPHYLOCOCCAL SKIN INFECTION [None]
  - TOE AMPUTATION [None]
  - WOUND HAEMORRHAGE [None]
